FAERS Safety Report 21159747 (Version 2)
Quarter: 2022Q3

REPORT INFORMATION
  Report Type: Spontaneous
  Country: US (occurrence: US)
  Receive Date: 20220802
  Receipt Date: 20220903
  Transmission Date: 20221027
  Serious: No
  Sender: FDA-Public Use
  Company Number: US-UNITED THERAPEUTICS-UNT-2022-016672

PATIENT
  Sex: Female

DRUGS (2)
  1. REMODULIN [Suspect]
     Active Substance: TREPROSTINIL
     Indication: Pulmonary arterial hypertension
     Dosage: UNK, CONTINUING
     Route: 058
     Dates: start: 20211005
  2. REMODULIN [Suspect]
     Active Substance: TREPROSTINIL
     Dosage: 0.03041 ?G/KG, CONTINUING
     Route: 058

REACTIONS (2)
  - Dyspnoea [Recovered/Resolved]
  - Temperature intolerance [Recovered/Resolved]
